FAERS Safety Report 16323566 (Version 2)
Quarter: 2019Q2

REPORT INFORMATION
  Report Type: Spontaneous
  Country: ES (occurrence: ES)
  Receive Date: 20190517
  Receipt Date: 20190517
  Transmission Date: 20190711
  Serious: Yes (Other)
  Sender: FDA-Public Use
  Company Number: ES-AUROBINDO-AUR-APL-2019-025093

PATIENT

DRUGS (3)
  1. OXALIPLATIN. [Suspect]
     Active Substance: OXALIPLATIN
     Indication: COLON NEOPLASM
     Dosage: UNK
     Route: 065
  2. CAPECITABINE. [Suspect]
     Active Substance: CAPECITABINE
     Indication: COLON NEOPLASM
     Dosage: UNK
     Route: 065
  3. BEVACIZUMAB. [Suspect]
     Active Substance: BEVACIZUMAB
     Indication: COLON NEOPLASM
     Dosage: UNK
     Route: 065

REACTIONS (6)
  - Hypoalbuminaemia [Unknown]
  - Enteritis [Recovered/Resolved]
  - Coagulopathy [Unknown]
  - Pyrexia [Unknown]
  - Diarrhoea [Recovered/Resolved]
  - Hypocalcaemia [Unknown]
